FAERS Safety Report 9262872 (Version 1)
Quarter: 2013Q2

REPORT INFORMATION
  Report Type: Spontaneous
  Country: FR (occurrence: FR)
  Receive Date: 20130430
  Receipt Date: 20130430
  Transmission Date: 20140414
  Serious: Yes (Hospitalization, Other)
  Sender: FDA-Public Use
  Company Number: FR-MERCK-1304FRA013920

PATIENT
  Age: 35 Year
  Sex: Female

DRUGS (1)
  1. VARNOLINE CONTINU [Suspect]
     Indication: ORAL CONTRACEPTION
     Route: 048

REACTIONS (1)
  - Myocardial infarction [Recovered/Resolved]
